FAERS Safety Report 13306785 (Version 1)
Quarter: 2017Q1

REPORT INFORMATION
  Report Type: Spontaneous
  Country: US (occurrence: US)
  Receive Date: 20170308
  Receipt Date: 20170308
  Transmission Date: 20170428
  Serious: No
  Sender: FDA-Public Use
  Company Number: US-AKORN PHARMACEUTICALS-2017AKN00026

PATIENT
  Sex: Female

DRUGS (5)
  1. MYORISAN [Suspect]
     Active Substance: ISOTRETINOIN
     Dosage: 40 MG, 1X/DAY
     Dates: start: 201612, end: 20170102
  2. SALICYLIC [Concomitant]
     Dosage: UNK, 1X/DAY AT NIGHT
  3. CERAVE HEALING OINTMENT [Concomitant]
     Dosage: UNK, 2X/DAY
  4. UREA. [Concomitant]
     Active Substance: UREA
     Dosage: UNK, 2X/DAY
  5. MYORISAN [Suspect]
     Active Substance: ISOTRETINOIN
     Indication: ACNE
     Dosage: 40 MG, 2X/DAY
     Route: 048
     Dates: start: 20161129, end: 201612

REACTIONS (1)
  - Abdominal discomfort [Recovered/Resolved]
